FAERS Safety Report 11880513 (Version 2)
Quarter: 2016Q1

REPORT INFORMATION
  Report Type: Spontaneous
  Country: HR (occurrence: HR)
  Receive Date: 20151230
  Receipt Date: 20160323
  Transmission Date: 20160526
  Serious: Yes (Death)
  Sender: FDA-Public Use
  Company Number: HR-ELI_LILLY_AND_COMPANY-HR201512008143

PATIENT
  Sex: Female
  Weight: 76 kg

DRUGS (9)
  1. VENTOLIN [Concomitant]
     Active Substance: ALBUTEROL SULFATE
     Indication: SYSTEMIC SCLEROSIS
     Dosage: UNK, UNKNOWN
     Route: 055
     Dates: start: 2012
  2. ORTALOX [Concomitant]
     Indication: GASTRODUODENITIS
     Dosage: 20 MG, QD
     Route: 048
     Dates: start: 2007
  3. NEBILET [Concomitant]
     Active Substance: NEBIVOLOL
     Indication: ESSENTIAL HYPERTENSION
     Dosage: 2.5 MG, QD
     Route: 048
     Dates: start: 2013
  4. FORSTEO [Suspect]
     Active Substance: TERIPARATIDE
     Indication: OSTEOPOROTIC FRACTURE
     Dosage: 20 UG, QD
     Route: 058
     Dates: start: 20150717, end: 20150812
  5. DIAZEPAM JADRAN [Concomitant]
     Active Substance: DIAZEPAM
     Indication: SYSTEMIC SCLEROSIS
     Dosage: 5 MG, QD
     Route: 048
     Dates: start: 2006
  6. BRUFEN                             /00109201/ [Concomitant]
     Active Substance: IBUPROFEN
     Indication: SYSTEMIC SCLEROSIS
     Dosage: 600 MG, BID
     Route: 048
     Dates: start: 2006
  7. IRUMED [Concomitant]
     Indication: ESSENTIAL HYPERTENSION
     Dosage: 5 MG, QD
     Route: 048
     Dates: start: 2006
  8. ZARACET [Concomitant]
     Indication: SYSTEMIC SCLEROSIS
     Dosage: 1 DF, UNKNOWN
     Route: 048
     Dates: start: 2012
  9. RESOCHIN [Concomitant]
     Active Substance: NIFEDIPINE
     Indication: SYSTEMIC SCLEROSIS
     Dosage: 250 MG, BID
     Route: 048
     Dates: start: 2013

REACTIONS (7)
  - Cardiac failure chronic [Fatal]
  - Blood alkaline phosphatase increased [Unknown]
  - Mobility decreased [Unknown]
  - Pulmonary hypertension [Fatal]
  - Alanine aminotransferase increased [Unknown]
  - Gamma-glutamyltransferase increased [Unknown]
  - Aspartate aminotransferase increased [Unknown]
